FAERS Safety Report 19135606 (Version 6)
Quarter: 2021Q2

REPORT INFORMATION
  Report Type: Report from Study
  Country: PL (occurrence: PL)
  Receive Date: 20210414
  Receipt Date: 20210614
  Transmission Date: 20210717
  Serious: Yes (Hospitalization)
  Sender: FDA-Public Use
  Company Number: PL-EISAI MEDICAL RESEARCH-EC-2021-090947

PATIENT
  Age: 69 Year
  Sex: Female
  Weight: 88 kg

DRUGS (9)
  1. LENVATINIB [Suspect]
     Active Substance: LENVATINIB
     Indication: ENDOMETRIAL CANCER
     Route: 048
     Dates: start: 20210204, end: 20210406
  2. CAPTOPRIL. [Concomitant]
     Active Substance: CAPTOPRIL
     Dates: start: 20210222, end: 20210407
  3. POTAZEK [Concomitant]
     Active Substance: POTASSIUM CHLORIDE
     Dates: start: 20210311, end: 20210407
  4. PEMBROLIZUMAB. [Suspect]
     Active Substance: PEMBROLIZUMAB
     Route: 041
     Dates: start: 20210415
  5. AMLOZEK [Concomitant]
     Active Substance: AMLODIPINE BESYLATE
     Dates: start: 20210222, end: 20210407
  6. PEMBROLIZUMAB. [Suspect]
     Active Substance: PEMBROLIZUMAB
     Indication: ENDOMETRIAL CANCER
     Route: 041
     Dates: start: 20210204, end: 20210225
  7. NEBILET [Concomitant]
     Active Substance: NEBIVOLOL
     Dates: start: 201701
  8. LISIPROL HCT [Concomitant]
     Dates: start: 20210308
  9. PEMBROLIZUMAB. [Suspect]
     Active Substance: PEMBROLIZUMAB
     Route: 041
     Dates: start: 20210318, end: 20210318

REACTIONS (1)
  - Pulmonary embolism [Recovered/Resolved]

NARRATIVE: CASE EVENT DATE: 20210406
